FAERS Safety Report 16975699 (Version 11)
Quarter: 2020Q3

REPORT INFORMATION
  Report Type: Spontaneous
  Country: JP (occurrence: JP)
  Receive Date: 20191030
  Receipt Date: 20200814
  Transmission Date: 20201102
  Serious: Yes (Death, Life-Threatening, Hospitalization, Disabling, Other)
  Sender: FDA-Public Use
  Company Number: JP-BRISTOL-MYERS SQUIBB COMPANY-BMS-2019-102515

PATIENT
  Age: 66 Year
  Sex: Male
  Weight: 41.4 kg

DRUGS (2)
  1. OPDIVO [Suspect]
     Active Substance: NIVOLUMAB
     Indication: METASTATIC RENAL CELL CARCINOMA
     Dosage: 240 MILLIGRAM
     Route: 041
     Dates: start: 20191015
  2. YERVOY [Suspect]
     Active Substance: IPILIMUMAB
     Indication: METASTATIC RENAL CELL CARCINOMA
     Dosage: 1 MILLIGRAM/KILOGRAM
     Route: 041
     Dates: start: 20191015

REACTIONS (13)
  - Cerebral infarction [Recovered/Resolved with Sequelae]
  - Pancreatitis acute [Unknown]
  - Bradycardia [Unknown]
  - Duodenal ulcer [Fatal]
  - Cardiac arrest [Not Recovered/Not Resolved]
  - Normocytic anaemia [Unknown]
  - Ventricular extrasystoles [Unknown]
  - Blood pressure decreased [Unknown]
  - Diarrhoea [Unknown]
  - Malignant neoplasm progression [Fatal]
  - Shock haemorrhagic [Fatal]
  - Ventricular tachycardia [Unknown]
  - Atrial flutter [Unknown]

NARRATIVE: CASE EVENT DATE: 20191020
